FAERS Safety Report 17814626 (Version 1)
Quarter: 2020Q2

REPORT INFORMATION
  Report Type: Report from Study
  Country: FR (occurrence: FR)
  Receive Date: 20200522
  Receipt Date: 20200522
  Transmission Date: 20200714
  Serious: Yes (Other)
  Sender: FDA-Public Use
  Company Number: FR-BEH-2020117765

PATIENT
  Sex: Female

DRUGS (2)
  1. FIBROGAMMIN P [Suspect]
     Active Substance: FACTOR XIII CONCENTRATE (HUMAN)
     Indication: PROPHYLAXIS
     Dosage: 1 INFUSION EVERY 2 MONTHS
     Route: 065
  2. FIBROGAMMIN P [Suspect]
     Active Substance: FACTOR XIII CONCENTRATE (HUMAN)
     Indication: FACTOR XIII DEFICIENCY
     Dosage: 1750 INTERNATIONAL UNIT, QMT
     Route: 065

REACTIONS (3)
  - Abortion spontaneous [Unknown]
  - Drug ineffective [Unknown]
  - Underdose [Unknown]
